FAERS Safety Report 9519765 (Version 1)
Quarter: 2013Q3

REPORT INFORMATION
  Report Type: Spontaneous
  Country: US (occurrence: None)
  Receive Date: 20130911
  Receipt Date: 20130911
  Transmission Date: 20140515
  Serious: No
  Sender: FDA-Public Use
  Company Number: None

PATIENT
  Age: 4 Year
  Sex: Male
  Weight: 22.68 kg

DRUGS (1)
  1. ALVESCO [Suspect]
     Dates: start: 20130812, end: 20130910

REACTIONS (2)
  - Asthma [None]
  - Device malfunction [None]
